FAERS Safety Report 7433244-5 (Version None)
Quarter: 2011Q2

REPORT INFORMATION
  Report Type: 
  Country: None (occurrence: None)
  Receive Date: 20110415
  Receipt Date: 20110401
  Transmission Date: 20111010
  Serious: Yes (Congenital Anomaly)
  Sender: FDA-Public Use
  Company Number: 030664

PATIENT

DRUGS (2)
  1. LEVETIRACETAM [Suspect]
     Dosage: (DAILY DOSE: 2750 (UNITS UNSPECIFIED) TRANSPLACENTAL)
     Route: 064
  2. CARBAMAZEPINE [Concomitant]

REACTIONS (3)
  - PREGNANCY [None]
  - ABORTION INDUCED [None]
  - DRUG EXPOSURE DURING PREGNANCY [None]
